FAERS Safety Report 8543499-1 (Version None)
Quarter: 2012Q3

REPORT INFORMATION
  Report Type: 
  Country: None (occurrence: None)
  Receive Date: 20120727
  Receipt Date: 20120724
  Transmission Date: 20120928
  Serious: Yes (Hospitalization, Other)
  Sender: FDA-Public Use
  Company Number: PHEH2009US07521

PATIENT
  Sex: Female
  Weight: 165 kg

DRUGS (19)
  1. CALCIUM CARBONATE [Concomitant]
  2. ZOMETA [Suspect]
     Indication: BONE NEOPLASM MALIGNANT
     Dates: start: 20050401, end: 20060701
  3. HYDROMORPHONE HCL [Concomitant]
  4. PRILOSEC [Concomitant]
  5. MULTI-VITAMINS [Concomitant]
  6. ADVAIR [Concomitant]
  7. ONE-A-DAY MAXIMUM-FORMULA [Concomitant]
  8. ASPIRIN [Concomitant]
  9. NEXIUM [Concomitant]
  10. MUCINEX [Concomitant]
  11. LEVOTHYROXINE SODIUM [Concomitant]
  12. PENICILLIN ^GRUNENTHAL^ [Concomitant]
  13. PREMARIN [Concomitant]
  14. VIOXX [Concomitant]
  15. OXYCODONE HCL [Concomitant]
  16. METRONIDAZOLE [Concomitant]
  17. GUAIFENESIN [Concomitant]
  18. OSTEO BI-FLEX [Concomitant]
  19. VICODIN [Concomitant]

REACTIONS (83)
  - ANXIETY [None]
  - SPINAL FRACTURE [None]
  - SPINAL DISORDER [None]
  - ARTHROPATHY [None]
  - TOOTHACHE [None]
  - PAIN IN JAW [None]
  - SPONDYLOLISTHESIS [None]
  - JOINT RANGE OF MOTION DECREASED [None]
  - HYPOTHYROIDISM [None]
  - OSTEOARTHRITIS [None]
  - UPPER RESPIRATORY TRACT INFECTION [None]
  - DYSPHAGIA [None]
  - CONSTIPATION [None]
  - SPIDER VEIN [None]
  - METASTATIC CARCINOID TUMOUR [None]
  - MUSCULAR WEAKNESS [None]
  - GASTROOESOPHAGEAL REFLUX DISEASE [None]
  - DIVERTICULUM [None]
  - ATELECTASIS [None]
  - TOOTH FRACTURE [None]
  - OSTEITIS [None]
  - FLANK PAIN [None]
  - NEOPLASM [None]
  - SPINAL OSTEOARTHRITIS [None]
  - DENTAL CARIES [None]
  - ASTHMA [None]
  - HEPATIC LESION [None]
  - HYPERKERATOSIS [None]
  - RENAL MASS [None]
  - EXPOSED BONE IN JAW [None]
  - OROPHARYNGEAL PAIN [None]
  - EAR DEFORMITY ACQUIRED [None]
  - SPONDYLOLYSIS [None]
  - BONE PAIN [None]
  - ARTHRALGIA [None]
  - EXERCISE TOLERANCE DECREASED [None]
  - PARAESTHESIA [None]
  - AORTIC VALVE INCOMPETENCE [None]
  - METASTASES TO BONE [None]
  - LUMBAR SPINAL STENOSIS [None]
  - FLATULENCE [None]
  - COLONIC POLYP [None]
  - WOUND [None]
  - BLOOD CHROMOGRANIN A INCREASED [None]
  - GASTRITIS [None]
  - INTERVERTEBRAL DISC DEGENERATION [None]
  - MYOCARDIAL INFARCTION [None]
  - LYMPHADENOPATHY [None]
  - DECREASED INTEREST [None]
  - PERIODONTITIS [None]
  - GINGIVAL PAIN [None]
  - EXOSTOSIS [None]
  - CHOLELITHIASIS [None]
  - NEOPLASM SKIN [None]
  - PLEURAL EFFUSION [None]
  - GAIT DISTURBANCE [None]
  - ERYTHEMA [None]
  - OSTEONECROSIS OF JAW [None]
  - ADNEXA UTERI MASS [None]
  - HIATUS HERNIA [None]
  - CARCINOID TUMOUR [None]
  - FIBROMA [None]
  - MUSCLE SPASMS [None]
  - GASTRIC POLYPS [None]
  - SWOLLEN TONGUE [None]
  - WEIGHT BEARING DIFFICULTY [None]
  - NECROSIS [None]
  - INJURY [None]
  - PAIN [None]
  - METASTASES TO SPINE [None]
  - ADRENAL MASS [None]
  - INTERVERTEBRAL DISC PROTRUSION [None]
  - COUGH [None]
  - GALLBLADDER DISORDER [None]
  - RHINORRHOEA [None]
  - DIARRHOEA [None]
  - GINGIVITIS [None]
  - ABDOMINAL DISCOMFORT [None]
  - VERTEBRAL FORAMINAL STENOSIS [None]
  - RENAL NEOPLASM [None]
  - DYSPNOEA EXERTIONAL [None]
  - BONE LOSS [None]
  - PELVIC PAIN [None]
